FAERS Safety Report 12232561 (Version 1)
Quarter: 2016Q2

REPORT INFORMATION
  Report Type: Spontaneous
  Country: FR (occurrence: FR)
  Receive Date: 20160401
  Receipt Date: 20160401
  Transmission Date: 20160815
  Serious: Yes (Hospitalization, Other)
  Sender: FDA-Public Use
  Company Number: FR-ASTRAZENECA-2016SE33940

PATIENT
  Age: 24623 Day
  Sex: Male

DRUGS (3)
  1. INEXIUM [Suspect]
     Active Substance: ESOMEPRAZOLE
     Route: 048
     Dates: start: 2000, end: 20160301
  2. DIOSMIN [Concomitant]
     Active Substance: DIOSMIN
  3. COTAREG [Concomitant]
     Active Substance: HYDROCHLOROTHIAZIDE\VALSARTAN

REACTIONS (10)
  - Spinal cord compression [Unknown]
  - Muscle rigidity [Recovered/Resolved]
  - Hypocalcaemia [Recovered/Resolved]
  - Blood parathyroid hormone decreased [Recovered/Resolved]
  - Hypomagnesaemia [Recovered/Resolved]
  - Tonic clonic movements [Recovered/Resolved]
  - Hypokalaemia [Recovered/Resolved]
  - Road traffic accident [Unknown]
  - Malaise [Unknown]
  - Lumbar vertebral fracture [Unknown]

NARRATIVE: CASE EVENT DATE: 201507
